FAERS Safety Report 6154152-6 (Version None)
Quarter: 2009Q2

REPORT INFORMATION
  Report Type: 
  Country: None (occurrence: None)
  Receive Date: 20090414
  Receipt Date: 20090403
  Transmission Date: 20091009
  Serious: Yes (Other)
  Sender: FDA-Public Use
  Company Number: US-ROCHE-625641

PATIENT
  Age: 86 Year
  Sex: Female

DRUGS (3)
  1. XENICAL [Suspect]
     Indication: DRUG USE FOR UNKNOWN INDICATION
     Route: 065
     Dates: start: 19990101
  2. MORPHINE PUMP [Concomitant]
  3. IBUPROFEN [Concomitant]

REACTIONS (4)
  - BACK PAIN [None]
  - CONTUSION [None]
  - FALL [None]
  - INTERVERTEBRAL DISC DEGENERATION [None]
